FAERS Safety Report 8962992 (Version 1)
Quarter: 2012Q4

REPORT INFORMATION
  Report Type: 
  Country: US (occurrence: US)
  Receive Date: 20121214
  Receipt Date: 20121214
  Transmission Date: 20130627
  Serious: Yes (Hospitalization, Other)
  Sender: FDA-Public Use
  Company Number: US-JNJFOC-20121203975

PATIENT
  Age: 19 Year
  Sex: Female

DRUGS (1)
  1. ACETAMINOPHEN [Suspect]
     Indication: PRODUCT USED FOR UNKNOWN INDICATION
     Dosage: 500 mg/tablet, total 225 tablets
     Route: 048

REACTIONS (10)
  - Metabolic acidosis [Recovered/Resolved]
  - Intentional overdose [Unknown]
  - Alanine aminotransferase increased [Unknown]
  - Aspartate aminotransferase increased [Recovered/Resolved]
  - Lethargy [None]
  - Blood pressure systolic increased [None]
  - Heart rate increased [None]
  - Respiratory rate increased [None]
  - Blood sodium decreased [None]
  - International normalised ratio increased [None]
